FAERS Safety Report 8155946-8 (Version None)
Quarter: 2012Q1

REPORT INFORMATION
  Report Type: 
  Country: None (occurrence: None)
  Receive Date: 20120222
  Receipt Date: 20120217
  Transmission Date: 20120608
  Serious: No
  Sender: FDA-Public Use
  Company Number: US-PFIZER INC-2012043673

PATIENT
  Sex: Female
  Weight: 49.89 kg

DRUGS (3)
  1. LIPITOR [Suspect]
     Indication: BLOOD CHOLESTEROL INCREASED
     Dosage: 20 MG, ONCE A DAY
     Route: 048
     Dates: end: 20111101
  2. ATORVASTATIN CALCIUM [Suspect]
     Indication: BLOOD CHOLESTEROL INCREASED
     Dosage: 20 MG, ONCE A DAY
     Route: 048
     Dates: start: 20111201, end: 20120101
  3. VITAMIN TAB [Concomitant]
     Dosage: UNK

REACTIONS (3)
  - MUSCULAR WEAKNESS [None]
  - DIZZINESS [None]
  - BLOOD CHOLESTEROL ABNORMAL [None]
